FAERS Safety Report 5269347-3 (Version None)
Quarter: 2007Q1

REPORT INFORMATION
  Report Type: 
  Country: None (occurrence: None)
  Receive Date: 20070319
  Receipt Date: 20070307
  Transmission Date: 20070707
  Serious: Yes (Other)
  Sender: FDA-Public Use
  Company Number: US-PFIZER INC-2007018393

PATIENT
  Sex: Female
  Weight: 58.5 kg

DRUGS (3)
  1. CHANTIX [Suspect]
     Indication: EX-SMOKER
     Dates: start: 20070223, end: 20070304
  2. TYLENOL [Concomitant]
  3. LEVONORGESTREL AND ETHINYL ESTRADIOL [Concomitant]

REACTIONS (11)
  - ANXIETY [None]
  - BEDRIDDEN [None]
  - DECREASED APPETITE [None]
  - DRUG EFFECT DECREASED [None]
  - FATIGUE [None]
  - IMPAIRED WORK ABILITY [None]
  - MALAISE [None]
  - NAUSEA [None]
  - PAIN IN EXTREMITY [None]
  - VOMITING [None]
  - WEIGHT DECREASED [None]
